FAERS Safety Report 14276081 (Version 1)
Quarter: 2017Q4

REPORT INFORMATION
  Report Type: Spontaneous
  Country: US (occurrence: US)
  Receive Date: 20171212
  Receipt Date: 20171212
  Transmission Date: 20180321
  Serious: No
  Sender: FDA-Public Use
  Company Number: US-BIOGEN-2017BI00491283

PATIENT
  Age: 70 Year
  Sex: Female

DRUGS (2)
  1. TYSABRI [Suspect]
     Active Substance: NATALIZUMAB
     Route: 065
     Dates: start: 20130725, end: 20131028
  2. TYSABRI [Suspect]
     Active Substance: NATALIZUMAB
     Indication: MULTIPLE SCLEROSIS
     Route: 065
     Dates: start: 20171019, end: 20171116

REACTIONS (7)
  - Pain in extremity [Unknown]
  - Haemorrhage [Unknown]
  - Headache [Unknown]
  - Peripheral swelling [Unknown]
  - Joint swelling [Unknown]
  - Diarrhoea [Unknown]
  - Multiple sclerosis relapse [Unknown]

NARRATIVE: CASE EVENT DATE: 20171119
